FAERS Safety Report 6142001-1 (Version None)
Quarter: 2009Q1

REPORT INFORMATION
  Report Type: 
  Country: None (occurrence: None)
  Receive Date: 20090331
  Receipt Date: 20090331
  Transmission Date: 20090719
  Serious: Yes (Other)
  Sender: FDA-Public Use
  Company Number: None

PATIENT
  Age: 63 Year
  Sex: Male
  Weight: 104.3273 kg

DRUGS (2)
  1. TRELSTAR UNKNOWN UNKNOWN [Suspect]
     Indication: PROSTATE CANCER
     Dosage: UNKNOWN 3 MONTHS IM
     Route: 030
     Dates: start: 20081201, end: 20090120
  2. LUPRON DEPOT [Suspect]
     Indication: PROSTATE CANCER
     Dosage: UNKNOWN 3 MOTHS IM
     Route: 030
     Dates: start: 20021001, end: 20081201

REACTIONS (3)
  - SKIN LESION [None]
  - SKIN ULCER [None]
  - TYPE 2 DIABETES MELLITUS [None]
